FAERS Safety Report 6257094-0 (Version None)
Quarter: 2009Q3

REPORT INFORMATION
  Report Type: 
  Country: None (occurrence: None)
  Receive Date: 20090706
  Receipt Date: 20090625
  Transmission Date: 20100115
  Serious: Yes (Death, Hospitalization)
  Sender: FDA-Public Use
  Company Number: B0580580A

PATIENT
  Sex: Female

DRUGS (5)
  1. AUGMENTIN '125' [Suspect]
     Indication: DRUG USE FOR UNKNOWN INDICATION
     Route: 048
     Dates: start: 20090527, end: 20090527
  2. DETENSIEL [Concomitant]
     Indication: HYPERTENSION
     Route: 048
  3. LERCAN [Concomitant]
     Route: 065
  4. ACUILIX [Concomitant]
     Route: 065
  5. VASTAREL [Concomitant]
     Route: 065

REACTIONS (3)
  - ACCIDENTAL EXPOSURE [None]
  - ANAPHYLACTIC SHOCK [None]
  - CARDIOGENIC SHOCK [None]
